FAERS Safety Report 16527192 (Version 1)
Quarter: 2019Q3

REPORT INFORMATION
  Report Type: Spontaneous
  Country: DE (occurrence: DE)
  Receive Date: 20190703
  Receipt Date: 20190703
  Transmission Date: 20191004
  Serious: Yes (Other)
  Sender: FDA-Public Use
  Company Number: DE-OTSUKA-2016_004135

PATIENT
  Sex: Male

DRUGS (9)
  1. HALDOL DECANOAS [Concomitant]
     Active Substance: HALOPERIDOL DECANOATE
     Indication: PRODUCT USED FOR UNKNOWN INDICATION
     Dosage: 1.8 ML, Q4WK
     Route: 065
  2. TAVOR [Concomitant]
     Indication: PRODUCT USED FOR UNKNOWN INDICATION
     Dosage: 1 MG, PRN
     Route: 065
  3. ABILIFY [Suspect]
     Active Substance: ARIPIPRAZOLE
     Dosage: 15 MG,QD
     Route: 065
     Dates: start: 2012
  4. ABILIFY [Suspect]
     Active Substance: ARIPIPRAZOLE
     Dosage: UNK
     Route: 065
  5. BROMAZEPAM [Concomitant]
     Active Substance: BROMAZEPAM
     Indication: PRODUCT USED FOR UNKNOWN INDICATION
     Dosage: 6 MG, PRN
     Route: 065
  6. ABILIFY [Suspect]
     Active Substance: ARIPIPRAZOLE
     Indication: SCHIZOPHRENIA
     Dosage: 15 MG, QD
     Route: 065
     Dates: start: 201307
  7. ABILIFY [Suspect]
     Active Substance: ARIPIPRAZOLE
     Dosage: 15 MG, QD
     Route: 065
     Dates: start: 200806, end: 200808
  8. ABILIFY [Suspect]
     Active Substance: ARIPIPRAZOLE
     Dosage: 15 MG, QD
     Route: 065
     Dates: start: 20100217, end: 20101129
  9. ABILIFY [Suspect]
     Active Substance: ARIPIPRAZOLE
     Dosage: 15 MG,QD
     Route: 065
     Dates: start: 201901

REACTIONS (25)
  - Enamel anomaly [Recovering/Resolving]
  - Fear of death [Recovering/Resolving]
  - Chest discomfort [Recovering/Resolving]
  - Treatment noncompliance [Unknown]
  - Sleep disorder [Recovering/Resolving]
  - Toothache [Not Recovered/Not Resolved]
  - Angina pectoris [Not Recovered/Not Resolved]
  - Gingival atrophy [Recovering/Resolving]
  - Nightmare [Not Recovered/Not Resolved]
  - Pain in jaw [Recovered/Resolved]
  - Fear [Recovered/Resolved]
  - Head discomfort [Recovered/Resolved]
  - Memory impairment [Unknown]
  - Memory impairment [Recovered/Resolved]
  - Headache [Not Recovered/Not Resolved]
  - Choking [Recovered/Resolved]
  - Gingival disorder [Recovering/Resolving]
  - Somatic symptom disorder [Unknown]
  - Ocular discomfort [Recovered/Resolved]
  - Psychotic disorder [Recovering/Resolving]
  - Muscle tightness [Recovering/Resolving]
  - Dysphagia [Not Recovered/Not Resolved]
  - Tooth disorder [Recovering/Resolving]
  - Arrhythmia [Recovering/Resolving]
  - Bruxism [Recovered/Resolved]

NARRATIVE: CASE EVENT DATE: 200806
